FAERS Safety Report 9213988 (Version 1)
Quarter: 2013Q2

REPORT INFORMATION
  Report Type: Spontaneous
  Country: US (occurrence: None)
  Receive Date: 20130404
  Receipt Date: 20130404
  Transmission Date: 20140414
  Serious: Yes (Hospitalization)
  Sender: FDA-Public Use
  Company Number: None

PATIENT
  Age: 61 Year
  Sex: Male
  Weight: 115 kg

DRUGS (8)
  1. METHOTREXATE [Suspect]
  2. RITUXIMAB [Suspect]
  3. TEMOZOLOMIDE [Suspect]
  4. DOCUSATE SODIUM [Concomitant]
  5. LEVITIRACETUM [Concomitant]
  6. ONDANSETRON [Suspect]
  7. SENNA [Concomitant]
  8. SODIUM BICARBONATE [Concomitant]

REACTIONS (6)
  - Pyrexia [None]
  - Productive cough [None]
  - Sputum discoloured [None]
  - Sinus congestion [None]
  - Pneumonia [None]
  - Pneumonitis [None]
